FAERS Safety Report 21519287 (Version 1)
Quarter: 2022Q4

REPORT INFORMATION
  Report Type: Spontaneous
  Country: US (occurrence: US)
  Receive Date: 20221028
  Receipt Date: 20221028
  Transmission Date: 20230113
  Serious: Yes (Life-Threatening, Hospitalization, Other)
  Sender: FDA-Public Use
  Company Number: US-JNJFOC-20221045156

PATIENT
  Age: 23 Year
  Sex: Male
  Weight: 75 kg

DRUGS (5)
  1. ACETAMINOPHEN [Suspect]
     Active Substance: ACETAMINOPHEN
     Indication: Product used for unknown indication
     Dosage: INGESTING, POTENTIALLY 188.5 G OF EXTENDED-RELEASE ACETAMINOPHEN (APAP)
     Route: 048
  2. LORATADINE [Concomitant]
     Active Substance: LORATADINE
     Indication: Product used for unknown indication
     Route: 065
  3. HYDROCODONE [Concomitant]
     Active Substance: HYDROCODONE
     Indication: Product used for unknown indication
     Route: 048
  4. NAPROXEN [Concomitant]
     Active Substance: NAPROXEN
     Indication: Product used for unknown indication
     Route: 048
  5. IBUPROFEN [Concomitant]
     Active Substance: IBUPROFEN
     Indication: Product used for unknown indication
     Route: 048

REACTIONS (6)
  - Agitation [Recovered/Resolved]
  - Laryngospasm [Recovered/Resolved]
  - Bezoar [Recovered/Resolved]
  - Analgesic drug level increased [Recovered/Resolved]
  - Acute hepatic failure [Recovered/Resolved]
  - Overdose [Unknown]
